FAERS Safety Report 8541170-3 (Version None)
Quarter: 2012Q3

REPORT INFORMATION
  Report Type: 
  Country: None (occurrence: None)
  Receive Date: 20120726
  Receipt Date: 20120718
  Transmission Date: 20120928
  Serious: Yes (Hospitalization)
  Sender: FDA-Public Use
  Company Number: US-ACTELION-A-US2012-67301

PATIENT

DRUGS (4)
  1. EPOPROSTENOL SODIUM [Suspect]
     Indication: PULMONARY ARTERIAL HYPERTENSION
     Dosage: 34.5 NG/KG, PER MIN
     Route: 042
     Dates: start: 20110902
  2. PRADAXA [Concomitant]
  3. LETAIRIS [Concomitant]
     Dosage: UNK
     Dates: start: 20110901
  4. SILDENAFIL [Concomitant]
     Dosage: UNK
     Dates: start: 20020101

REACTIONS (9)
  - DYSPNOEA [None]
  - STENT PLACEMENT [None]
  - ACUTE RESPIRATORY FAILURE [None]
  - OXYGEN SATURATION DECREASED [None]
  - SPUTUM CULTURE POSITIVE [None]
  - COUGH [None]
  - HAEMOPTYSIS [None]
  - RESPIRATORY DISTRESS [None]
  - STAPHYLOCOCCUS TEST POSITIVE [None]
